FAERS Safety Report 22995471 (Version 2)
Quarter: 2023Q4

REPORT INFORMATION
  Report Type: Spontaneous
  Country: RU (occurrence: RU)
  Receive Date: 20230927
  Receipt Date: 20231004
  Transmission Date: 20240109
  Serious: Yes (Other)
  Sender: FDA-Public Use
  Company Number: RU-ORGANON-O2309RUS002631

PATIENT
  Age: 25 Year
  Sex: Female

DRUGS (2)
  1. NUVARING [Suspect]
     Active Substance: ETHINYL ESTRADIOL\ETONOGESTREL
     Indication: Contraception
     Dosage: 1 RING FOR EVERY 21 DAYS WITH 1 RING FREE WEEK (QM)
     Route: 067
     Dates: start: 2020, end: 2023
  2. NUVARING [Suspect]
     Active Substance: ETHINYL ESTRADIOL\ETONOGESTREL
     Dosage: 1 RING FOR EVERY 21 DAYS WITH 1 RING FREE WEEK (QM) (PACKAGE NUMBER 3)
     Route: 067
     Dates: start: 2023, end: 202309

REACTIONS (4)
  - Pregnancy with contraceptive device [Recovered/Resolved]
  - Abortion induced [Unknown]
  - Unintended pregnancy [Recovered/Resolved]
  - Malaise [Unknown]

NARRATIVE: CASE EVENT DATE: 20230101
